FAERS Safety Report 16628661 (Version 3)
Quarter: 2019Q4

REPORT INFORMATION
  Report Type: Spontaneous
  Country: US (occurrence: US)
  Receive Date: 20190725
  Receipt Date: 20191230
  Transmission Date: 20200122
  Serious: Yes (Hospitalization)
  Sender: FDA-Public Use
  Company Number: US-PFIZER INC-2019041050

PATIENT
  Age: 68 Year
  Sex: Male
  Weight: 131 kg

DRUGS (7)
  1. HCTZ [Concomitant]
     Active Substance: HYDROCHLOROTHIAZIDE
     Indication: PERIPHERAL SWELLING
  2. HCTZ [Concomitant]
     Active Substance: HYDROCHLOROTHIAZIDE
     Indication: HYPERTENSION
     Dosage: UNK
  3. LYRICA [Suspect]
     Active Substance: PREGABALIN
     Indication: NEUROPATHY PERIPHERAL
     Dosage: 150 MG, 2X/DAY (2 CAPSULES ORALLY EVERY 12 HOURS)
     Route: 048
  4. LOSARTAN. [Concomitant]
     Active Substance: LOSARTAN
     Indication: HYPERTENSION
     Dosage: UNK
  5. LYRICA [Suspect]
     Active Substance: PREGABALIN
     Indication: PAIN
     Dosage: 150 MG, 3X/DAY  [TAKE 1 PO THREE TIMES A DAY]
     Route: 048
     Dates: start: 201503
  6. LOSARTAN. [Concomitant]
     Active Substance: LOSARTAN
     Indication: PERIPHERAL SWELLING
  7. LASIX [Concomitant]
     Active Substance: FUROSEMIDE
     Dosage: 25 MG, 1X/DAY

REACTIONS (7)
  - Condition aggravated [Unknown]
  - Spinal stenosis [Unknown]
  - Paraesthesia [Unknown]
  - Dysstasia [Unknown]
  - Pain [Unknown]
  - Dry mouth [Not Recovered/Not Resolved]
  - Gait inability [Unknown]

NARRATIVE: CASE EVENT DATE: 2016
